FAERS Safety Report 14874475 (Version 1)
Quarter: 2018Q2

REPORT INFORMATION
  Report Type: Spontaneous
  Country: DE (occurrence: DE)
  Receive Date: 20180510
  Receipt Date: 20180510
  Transmission Date: 20180711
  Serious: Yes (Death, Hospitalization)
  Sender: FDA-Public Use
  Company Number: DE-AUROBINDO-AUR-APL-2017-20192

PATIENT
  Age: 78 Year
  Sex: Female

DRUGS (4)
  1. CONPIN [Suspect]
     Active Substance: ISOSORBIDE MONONITRATE
     Indication: SUICIDAL IDEATION
     Dosage: 2 GRAMS
  2. CIBACEN [Suspect]
     Active Substance: BENAZEPRIL HYDROCHLORIDE
     Indication: SUICIDAL IDEATION
     Dosage: UNK
  3. MIRTAZAPINE (UNKNOWN) [Suspect]
     Active Substance: MIRTAZAPINE
     Indication: SUICIDE ATTEMPT
     Dosage: 600 MG
  4. NORVASC [Suspect]
     Active Substance: AMLODIPINE BESYLATE
     Indication: SUICIDAL IDEATION
     Dosage: UNK

REACTIONS (3)
  - Vasodilatation [Fatal]
  - Intestinal ischaemia [Fatal]
  - Cardiac failure [Fatal]
